FAERS Safety Report 8302770-9 (Version None)
Quarter: 2012Q2

REPORT INFORMATION
  Report Type: 
  Country: None (occurrence: None)
  Receive Date: 20120420
  Receipt Date: 20110616
  Transmission Date: 20120825
  Serious: No
  Sender: FDA-Public Use
  Company Number: US-PFIZER INC-K201100742

PATIENT
  Age: 49 Year
  Sex: Female
  Weight: 99.32 kg

DRUGS (3)
  1. AVINZA [Suspect]
     Indication: BACK PAIN
     Dosage: 90 MG, 1X/DAY
     Route: 048
     Dates: start: 20080101, end: 20100101
  2. AVINZA [Suspect]
     Dosage: 60 MG, 1X/DAY
     Route: 048
     Dates: start: 20100101
  3. PERCOCET [Suspect]
     Indication: BACK PAIN
     Dosage: UNK
     Route: 048
     Dates: start: 20100101, end: 20100101

REACTIONS (2)
  - DEPENDENCE [None]
  - DRUG INEFFECTIVE [None]
